FAERS Safety Report 8447512-1 (Version None)
Quarter: 2012Q2

REPORT INFORMATION
  Report Type: 
  Country: None (occurrence: None)
  Receive Date: 20120619
  Receipt Date: 20120608
  Transmission Date: 20120825
  Serious: Yes (Other)
  Sender: FDA-Public Use
  Company Number: JP-ELI_LILLY_AND_COMPANY-JP201206003389

PATIENT
  Age: 85 Year
  Sex: Female

DRUGS (4)
  1. FORTEO [Suspect]
     Dosage: UNK
     Route: 058
  2. BUCILLATE [Concomitant]
  3. DIAZEPAM [Concomitant]
  4. ANTIEPILEPTICS [Concomitant]

REACTIONS (2)
  - EPILEPSY [None]
  - SOMNOLENCE [None]
